FAERS Safety Report 11814198 (Version 1)
Quarter: 2015Q4

REPORT INFORMATION
  Report Type: Spontaneous
  Country: CA (occurrence: CA)
  Receive Date: 20151209
  Receipt Date: 20151209
  Transmission Date: 20160305
  Serious: Yes (Other)
  Sender: FDA-Public Use
  Company Number: CA-009507513-1510CAN012363

PATIENT
  Age: 24 Year
  Sex: Female

DRUGS (1)
  1. RAGWITEK [Suspect]
     Active Substance: AMBROSIA ARTEMISIIFOLIA POLLEN
     Indication: RHINITIS ALLERGIC
     Dosage: 12 U, QD
     Route: 060
     Dates: start: 20150615, end: 201510

REACTIONS (2)
  - Eosinophilic oesophagitis [Recovering/Resolving]
  - Food allergy [Not Recovered/Not Resolved]

NARRATIVE: CASE EVENT DATE: 201507
